FAERS Safety Report 6039685-5 (Version None)
Quarter: 2009Q1

REPORT INFORMATION
  Report Type: 
  Country: None (occurrence: None)
  Receive Date: 20090116
  Receipt Date: 20080310
  Transmission Date: 20090719
  Serious: No
  Sender: FDA-Public Use
  Company Number: US-KINGPHARMUSA00001-K200800299

PATIENT
  Sex: Female
  Weight: 90.703 kg

DRUGS (9)
  1. CORGARD [Suspect]
     Indication: MIGRAINE
     Dosage: 80 MG, QD
     Route: 048
     Dates: start: 19900101, end: 19980101
  2. CORGARD [Suspect]
     Dosage: 60 MG, QD
     Route: 048
     Dates: start: 19980101, end: 20070101
  3. CORGARD [Suspect]
     Dosage: 60 MG, QD
     Route: 048
     Dates: start: 20070101
  4. ADVAIR DISKUS 100/50 [Concomitant]
     Indication: ASTHMA
     Dosage: UNK, QD
  5. PROTONIX /01263201/ [Concomitant]
     Indication: BARRETT'S OESOPHAGUS
  6. ALBUTEROL [Concomitant]
     Indication: ASTHMA
     Dosage: UNK, PRN
  7. SINGULAIR [Concomitant]
     Indication: ASTHMA
     Dosage: UNK, QD
  8. CRESTOR [Concomitant]
     Indication: BLOOD CHOLESTEROL
  9. FLUTICASONE PROPIONATE [Concomitant]
     Indication: HYPERSENSITIVITY
     Dosage: UNK, UNK
     Route: 045

REACTIONS (1)
  - MIGRAINE [None]
